FAERS Safety Report 6858872-7 (Version None)
Quarter: 2010Q3

REPORT INFORMATION
  Report Type: 
  Country: None (occurrence: None)
  Receive Date: 20100719
  Receipt Date: 20081004
  Transmission Date: 20110219
  Serious: No
  Sender: FDA-Public Use
  Company Number: US-PFIZER INC-2008014079

PATIENT
  Age: 51 Year
  Sex: Female
  Weight: 61.4 kg

DRUGS (5)
  1. CHANTIX [Suspect]
     Indication: SMOKING CESSATION THERAPY
     Dates: start: 20080208, end: 20080208
  2. ATIVAN [Suspect]
     Indication: STRESS
  3. ATIVAN [Suspect]
     Indication: PANIC ATTACK
  4. SPIRIVA [Concomitant]
  5. ALBUTEROL [Concomitant]

REACTIONS (11)
  - ABDOMINAL PAIN UPPER [None]
  - ABNORMAL DREAMS [None]
  - CHEST PAIN [None]
  - DISORIENTATION [None]
  - DIZZINESS [None]
  - FATIGUE [None]
  - FEELING ABNORMAL [None]
  - HYPOAESTHESIA ORAL [None]
  - MALAISE [None]
  - PANIC ATTACK [None]
  - TREMOR [None]
